FAERS Safety Report 9564479 (Version 1)
Quarter: 2013Q3

REPORT INFORMATION
  Report Type: Spontaneous
  Country: BR (occurrence: BR)
  Receive Date: 20130930
  Receipt Date: 20130930
  Transmission Date: 20140515
  Serious: Yes (Other)
  Sender: FDA-Public Use
  Company Number: BR-JNJFOC-20130913882

PATIENT
  Age: 42 Year
  Sex: Female
  Weight: 67.3 kg

DRUGS (1)
  1. REMICADE [Suspect]
     Indication: CROHN^S DISEASE
     Route: 042
     Dates: start: 20130821

REACTIONS (3)
  - Central nervous system inflammation [Unknown]
  - Pneumonia [Unknown]
  - Glossitis [Unknown]
